FAERS Safety Report 25243468 (Version 1)
Quarter: 2025Q2

REPORT INFORMATION
  Report Type: Spontaneous
  Country: US (occurrence: US)
  Receive Date: 20250428
  Receipt Date: 20250428
  Transmission Date: 20250717
  Serious: No
  Sender: SUNOVION
  Company Number: US-SMPA-2025SPA004038AA

PATIENT

DRUGS (2)
  1. ORGOVYX [Suspect]
     Active Substance: RELUGOLIX
     Route: 048
     Dates: start: 202409
  2. LUPRON [Suspect]
     Active Substance: LEUPROLIDE ACETATE
     Route: 065

REACTIONS (3)
  - Dyspnoea [Unknown]
  - Oedema [Unknown]
  - Fatigue [Unknown]
